FAERS Safety Report 7709186-4 (Version None)
Quarter: 2011Q3

REPORT INFORMATION
  Report Type: 
  Country: None (occurrence: None)
  Receive Date: 20110825
  Receipt Date: 20110818
  Transmission Date: 20111222
  Serious: Yes (Hospitalization)
  Sender: FDA-Public Use
  Company Number: GB-ROCHE-797936

PATIENT
  Age: 60 Year
  Sex: Female

DRUGS (4)
  1. LANSOPRAZOLE [Concomitant]
     Indication: DYSPEPSIA
     Route: 048
  2. AMLODIPINE [Concomitant]
     Indication: HYPERTENSION
     Route: 048
  3. PERINDOPRIL [Concomitant]
     Indication: HYPERTENSION
     Route: 048
  4. AVASTIN [Suspect]
     Indication: CHOROIDAL NEOVASCULARISATION
     Dosage: DRUG WITHDRAWN
     Route: 031
     Dates: start: 20110520, end: 20110520

REACTIONS (2)
  - NECK PAIN [None]
  - CHEST PAIN [None]
